FAERS Safety Report 14731869 (Version 2)
Quarter: 2018Q2

REPORT INFORMATION
  Report Type: Spontaneous
  Country: US (occurrence: US)
  Receive Date: 20180408
  Receipt Date: 20180418
  Transmission Date: 20180711
  Serious: No
  Sender: FDA-Public Use
  Company Number: US-TEVA-2018-US-878644

PATIENT
  Sex: Female

DRUGS (1)
  1. KETOCONAZOLE. [Suspect]
     Active Substance: KETOCONAZOLE
     Route: 065
     Dates: start: 20180327

REACTIONS (3)
  - Swelling face [Not Recovered/Not Resolved]
  - Tenderness [Not Recovered/Not Resolved]
  - Blister [Unknown]
